FAERS Safety Report 8202575-3 (Version None)
Quarter: 2012Q1

REPORT INFORMATION
  Report Type: 
  Country: None (occurrence: None)
  Receive Date: 20120312
  Receipt Date: 20120227
  Transmission Date: 20120608
  Serious: Yes (Hospitalization)
  Sender: FDA-Public Use
  Company Number: US-ALLERGAN-1201178US

PATIENT
  Age: 84 Year
  Sex: Female
  Weight: 68.027 kg

DRUGS (1)
  1. BOTULINUM TOXIN TYPE A [Suspect]
     Indication: NEUROGENIC BLADDER
     Dosage: 200 UNITS, SINGLE
     Route: 030
     Dates: start: 20120112, end: 20120112

REACTIONS (3)
  - CEREBROVASCULAR ACCIDENT [None]
  - SWELLING FACE [None]
  - SPEECH DISORDER [None]
